FAERS Safety Report 4367166-3 (Version None)
Quarter: 2004Q2

REPORT INFORMATION
  Report Type: 
  Country: None (occurrence: None)
  Receive Date: 20040528
  Receipt Date: 20040315
  Transmission Date: 20050107
  Serious: Yes (Hospitalization)
  Sender: FDA-Public Use
  Company Number: FR-ROCHE-361659

PATIENT
  Age: 16 Month
  Sex: Female

DRUGS (4)
  1. ROACCUTANE [Suspect]
     Dosage: PLANNED TREATMENT REGIMEN STATED AS 40MG DAILY FOR 2 WEEKS AND THEN 2 WEEKS WITHOUT ISOTRETINOIN.FO+
     Route: 048
     Dates: start: 20031229
  2. ROACCUTANE [Suspect]
     Route: 048
     Dates: start: 20040315, end: 20040328
  3. ROACCUTANE [Suspect]
     Route: 048
     Dates: start: 20040412
  4. TEGELINE [Concomitant]
     Dosage: ADMINISTERED IN DAY HOSPITAL ON 12 DEC 2003, 6 JAN 2004, 30 JAN 2004, AND 20 FEB 2004.

REACTIONS (1)
  - HYPERCALCAEMIA [None]
